FAERS Safety Report 9726941 (Version 1)
Quarter: 2013Q4

REPORT INFORMATION
  Report Type: Spontaneous
  Country: US (occurrence: US)
  Receive Date: 20131203
  Receipt Date: 20131203
  Transmission Date: 20140711
  Serious: No
  Sender: FDA-Public Use
  Company Number: US-NOVEN-13US007265

PATIENT
  Sex: Female

DRUGS (1)
  1. FENTANYL [Suspect]
     Indication: PAIN
     Dosage: 100 UG/HR
     Route: 062
     Dates: start: 2011

REACTIONS (5)
  - Application site pain [Recovered/Resolved]
  - Application site exfoliation [Recovering/Resolving]
  - Application site vesicles [Recovering/Resolving]
  - Application site pruritus [Recovered/Resolved]
  - Hypersensitivity [Recovering/Resolving]
